FAERS Safety Report 26023590 (Version 1)
Quarter: 2025Q4

REPORT INFORMATION
  Report Type: Spontaneous
  Country: US (occurrence: US)
  Receive Date: 20251111
  Receipt Date: 20251111
  Transmission Date: 20260117
  Serious: Yes (Hospitalization, Other)
  Sender: PHARMOBEDIENT CONSULTING, LLC
  Company Number: US-Pharmobedient-000442

PATIENT
  Age: 49 Year
  Sex: Female

DRUGS (5)
  1. DOXORUBICIN HYDROCHLORIDE [Suspect]
     Active Substance: DOXORUBICIN HYDROCHLORIDE
     Indication: Transitional cell carcinoma metastatic
  2. CISPLATIN [Suspect]
     Active Substance: CISPLATIN
     Indication: Transitional cell carcinoma metastatic
  3. HEPARIN SODIUM [Suspect]
     Active Substance: HEPARIN SODIUM
     Indication: Venous thrombosis
     Route: 042
  4. METHOTREXATE [Suspect]
     Active Substance: METHOTREXATE
     Indication: Transitional cell carcinoma metastatic
  5. VINBLASTINE [Suspect]
     Active Substance: VINBLASTINE
     Indication: Transitional cell carcinoma metastatic

REACTIONS (13)
  - Condition aggravated [Unknown]
  - Thrombocytopenia [Unknown]
  - Vaginal haemorrhage [Unknown]
  - Hypotension [Unknown]
  - Respiratory failure [Unknown]
  - Anaemia [Unknown]
  - Acute kidney injury [Unknown]
  - Cardiac ventricular thrombosis [Unknown]
  - Multiple organ dysfunction syndrome [Unknown]
  - Deep vein thrombosis [Unknown]
  - Cytopenia [Unknown]
  - Neoplasm progression [Unknown]
  - Staphylococcal bacteraemia [Unknown]
